FAERS Safety Report 8534828-3 (Version None)
Quarter: 2012Q3

REPORT INFORMATION
  Report Type: 
  Country: None (occurrence: None)
  Receive Date: 20120724
  Receipt Date: 20120716
  Transmission Date: 20120928
  Serious: Yes (Hospitalization, Other)
  Sender: FDA-Public Use
  Company Number: US-JNJFOC-20120607730

PATIENT
  Sex: Male
  Weight: 74.84 kg

DRUGS (9)
  1. ASPIRIN [Suspect]
     Indication: PRODUCT USED FOR UNKNOWN INDICATION
  2. XARELTO [Suspect]
     Indication: CEREBROVASCULAR ACCIDENT PROPHYLAXIS
     Route: 048
     Dates: start: 20120613
  3. XARELTO [Suspect]
     Indication: ATRIAL FIBRILLATION
     Route: 048
     Dates: start: 20120501
  4. AMIODARONE HYDROCHLORIDE [Concomitant]
     Route: 048
     Dates: start: 20120501
  5. METOPROLOL SUCCINATE [Concomitant]
     Route: 048
     Dates: start: 20120501
  6. ALDACTONE [Concomitant]
     Route: 048
     Dates: start: 20120501, end: 20120702
  7. XARELTO [Suspect]
     Route: 048
     Dates: start: 20120501
  8. XARELTO [Suspect]
     Route: 048
     Dates: start: 20120613
  9. LASIX [Concomitant]
     Route: 048
     Dates: start: 20120501, end: 20120702

REACTIONS (3)
  - BLOOD CREATININE INCREASED [None]
  - GASTRIC ULCER HAEMORRHAGE [None]
  - CEREBRAL INFARCTION [None]
